FAERS Safety Report 15434252 (Version 1)
Quarter: 2018Q3

REPORT INFORMATION
  Report Type: Other
  Country: PL (occurrence: PL)
  Receive Date: 20180927
  Receipt Date: 20180927
  Transmission Date: 20181010
  Serious: Yes (Other)
  Sender: FDA-Public Use
  Company Number: PL-APOTEX-2018AP021213

PATIENT
  Age: 19 Year
  Sex: Male

DRUGS (3)
  1. VALPROATE SODIUM. [Suspect]
     Active Substance: VALPROATE SODIUM
     Indication: PARTIAL SEIZURES
     Dosage: 1000 MG, QD, MAINTAINING SERUM DRUG CONCENTRATION AT 90?100 ?G/ML LEVEL
     Route: 065
  2. TIAPRIDAL [Suspect]
     Active Substance: TIAPRIDE HYDROCHLORIDE
     Indication: PARTIAL SEIZURES
     Dosage: 250 MG, QD
     Route: 065
  3. LEVETIRACETAM. [Suspect]
     Active Substance: LEVETIRACETAM
     Indication: PARTIAL SEIZURES
     Dosage: 1500 MG, QD
     Route: 065

REACTIONS (3)
  - Partial seizures [Recovered/Resolved]
  - Loss of consciousness [Unknown]
  - Drug ineffective [Unknown]
